FAERS Safety Report 25095899 (Version 2)
Quarter: 2025Q3

REPORT INFORMATION
  Report Type: Spontaneous
  Country: EU (occurrence: EU)
  Receive Date: 20250319
  Receipt Date: 20250809
  Transmission Date: 20251021
  Serious: Yes (Life-Threatening, Hospitalization, Other)
  Sender: ALEXION PHARMACEUTICALS
  Company Number: EU-ASTRAZENECA-202503GLO015093IT

PATIENT
  Age: 56 Year
  Sex: Female

DRUGS (4)
  1. QUETIAPINE FUMARATE [Suspect]
     Active Substance: QUETIAPINE FUMARATE
     Route: 065
     Dates: start: 20240102, end: 20240102
  2. EN [Suspect]
     Active Substance: DELORAZEPAM
     Dates: start: 20240102, end: 20240102
  3. LAMICTAL [Suspect]
     Active Substance: LAMOTRIGINE
     Dates: start: 20240102, end: 20240102
  4. SIMVASTATIN [Suspect]
     Active Substance: SIMVASTATIN
     Dates: start: 20240102, end: 20240102

REACTIONS (3)
  - Drug abuse [Recovered/Resolved]
  - Intentional self-injury [Recovered/Resolved]
  - Sopor [Recovered/Resolved]

NARRATIVE: CASE EVENT DATE: 20240102
